FAERS Safety Report 9143600 (Version 1)
Quarter: 2013Q1

REPORT INFORMATION
  Report Type: Spontaneous
  Country: DE (occurrence: DE)
  Receive Date: 20130306
  Receipt Date: 20130306
  Transmission Date: 20140127
  Serious: Yes (Other)
  Sender: FDA-Public Use
  Company Number: DE-TEVA-387605GER

PATIENT
  Age: 0 Year
  Sex: Female

DRUGS (3)
  1. DOXEPIN [Suspect]
     Route: 064
  2. DIAZEPAM [Suspect]
     Route: 064
  3. INSULIN [Concomitant]
     Route: 065

REACTIONS (3)
  - Bradycardia neonatal [Recovered/Resolved]
  - Apnoea neonatal [Recovered/Resolved]
  - Hypotonia neonatal [Recovered/Resolved]
